FAERS Safety Report 11411858 (Version 1)
Quarter: 2015Q3

REPORT INFORMATION
  Report Type: Spontaneous
  Country: US (occurrence: US)
  Receive Date: 20150821
  Receipt Date: 20150821
  Transmission Date: 20151125
  Serious: No
  Sender: FDA-Public Use
  Company Number: US-ELI_LILLY_AND_COMPANY-US201110004144

PATIENT
  Sex: Female

DRUGS (5)
  1. HUMULIN 70/30 [Suspect]
     Active Substance: INSULIN HUMAN
     Dosage: 30 U, EACH MORNING
     Dates: start: 20111010
  2. HUMULIN 70/30 [Suspect]
     Active Substance: INSULIN HUMAN
     Dosage: 20 U, EACH EVENING
     Dates: start: 20111010
  3. HUMULIN 70/30 [Suspect]
     Active Substance: INSULIN HUMAN
     Indication: TYPE 2 DIABETES MELLITUS
     Dosage: 20 U, EACH MORNING
     Dates: start: 200909, end: 20111009
  4. HUMULIN 70/30 [Suspect]
     Active Substance: INSULIN HUMAN
     Dosage: 10 U, EACH EVENING
     Dates: start: 200909, end: 20111009
  5. HUMULIN 70/30 [Suspect]
     Active Substance: INSULIN HUMAN
     Dosage: 15 U, EACH EVENING

REACTIONS (3)
  - Blood glucose increased [Unknown]
  - Incorrect dose administered [Unknown]
  - Cataract [Unknown]
